FAERS Safety Report 7085999-X (Version None)
Quarter: 2010Q4

REPORT INFORMATION
  Report Type: 
  Country: None (occurrence: None)
  Receive Date: 20101105
  Receipt Date: 20101029
  Transmission Date: 20110411
  Serious: Yes (Hospitalization)
  Sender: FDA-Public Use
  Company Number: US-SANOFI-AVENTIS-2010SA066527

PATIENT
  Age: 72 Year
  Sex: Female
  Weight: 54 kg

DRUGS (4)
  1. HIPREX [Suspect]
     Indication: URINARY TRACT INFECTION
     Route: 048
     Dates: end: 20101026
  2. PREDNISONE [Concomitant]
  3. ALL OTHER THERAPEUTIC PRODUCTS [Concomitant]
  4. ANALGESICS [Concomitant]

REACTIONS (5)
  - ARRHYTHMIA [None]
  - CONFUSIONAL STATE [None]
  - DEHYDRATION [None]
  - MALAISE [None]
  - SOMNOLENCE [None]
